FAERS Safety Report 5528193-3 (Version None)
Quarter: 2007Q4

REPORT INFORMATION
  Report Type: 
  Country: None (occurrence: None)
  Receive Date: 20071121
  Receipt Date: 20071109
  Transmission Date: 20080405
  Serious: Yes (Hospitalization)
  Sender: FDA-Public Use
  Company Number: 163895ISR

PATIENT
  Age: 72 Year
  Sex: Male

DRUGS (1)
  1. BACLOFEN [Suspect]
     Indication: HICCUPS
     Dosage: 10 MG (5 MG, 2 IN 1 D), ORAL
     Route: 048
     Dates: start: 20070917, end: 20070920

REACTIONS (7)
  - DYSARTHRIA [None]
  - LOSS OF CONSCIOUSNESS [None]
  - MALAISE [None]
  - MUSCLE TWITCHING [None]
  - RASH GENERALISED [None]
  - VIRAL DIARRHOEA [None]
  - VOMITING [None]
